FAERS Safety Report 8736337 (Version 2)
Quarter: 2012Q4

REPORT INFORMATION
  Report Type: Spontaneous
  Country: DK (occurrence: None)
  Receive Date: 20120803
  Receipt Date: 20120905
  Transmission Date: 20130627
  Serious: Yes (Other)
  Sender: FDA-Public Use
  Company Number: 2012MA009286

PATIENT
  Age: 64 Year
  Sex: Female

DRUGS (8)
  1. DONEPEZIL HYDROCHLORIDE [Suspect]
     Indication: DRUG USE FOR UNAPPROVED INDICATION
     Route: 048
     Dates: start: 20111202, end: 201202
  2. SEDOXIL [Concomitant]
  3. ENALAPRIL MALEATE [Concomitant]
  4. BURINEX [Concomitant]
  5. S-OROPEAM [Concomitant]
  6. BUMETANIDE [Concomitant]
  7. OSTEOCARE [Concomitant]
  8. CIPRALEX [Concomitant]

REACTIONS (10)
  - Jaundice [None]
  - Chromaturia [None]
  - Blood bilirubin increased [None]
  - Blood alkaline phosphatase increased [None]
  - Gamma-glutamyltransferase increased [None]
  - Alpha-1 anti-trypsin increased [None]
  - Ocular icterus [None]
  - Pruritus [None]
  - Faeces discoloured [None]
  - Low density lipoprotein increased [None]
